FAERS Safety Report 21974692 (Version 1)
Quarter: 2023Q1

REPORT INFORMATION
  Report Type: Spontaneous
  Country: US (occurrence: None)
  Receive Date: 20230208
  Receipt Date: 20230208
  Transmission Date: 20230417
  Serious: Yes (unspecified)
  Sender: FDA-Public Use
  Company Number: None

PATIENT
  Age: 44 Year
  Sex: Female
  Weight: 99.9 kg

DRUGS (1)
  1. OCREVUS [Suspect]
     Active Substance: OCRELIZUMAB
     Indication: Multiple sclerosis
     Route: 041
     Dates: start: 20230208

REACTIONS (6)
  - Infusion related reaction [None]
  - Flushing [None]
  - Nausea [None]
  - Chest pain [None]
  - Dizziness [None]
  - Medical device site pain [None]

NARRATIVE: CASE EVENT DATE: 20230208
